FAERS Safety Report 5959991-X (Version None)
Quarter: 2008Q4

REPORT INFORMATION
  Report Type: 
  Country: None (occurrence: None)
  Receive Date: 20081120
  Receipt Date: 20081113
  Transmission Date: 20090506
  Serious: Yes (Other)
  Sender: FDA-Public Use
  Company Number: US-JNJFOC-20081103888

PATIENT
  Sex: Female
  Weight: 129.28 kg

DRUGS (10)
  1. FENTANYL TRANSDERMAL SYSTEM [Suspect]
     Indication: ARTHRITIS
     Route: 062
  2. DIOVAN [Concomitant]
     Indication: HYPERTENSION
     Dosage: 2 160MG TABLETS
     Route: 048
  3. COLACE [Concomitant]
     Indication: ABNORMAL FAECES
     Dosage: 2 50 MG CAPSULES
     Route: 048
  4. KLOR-CON [Concomitant]
     Dosage: FOR ^REPLACEMENT^
     Route: 048
  5. LANOXIN [Concomitant]
     Indication: HEART RATE IRREGULAR
     Route: 048
  6. TORSEMIDE [Concomitant]
     Indication: DIURETIC THERAPY
     Route: 048
  7. RYTHMOL [Concomitant]
     Indication: CARDIAC DISORDER
     Route: 048
  8. COUMADIN [Concomitant]
     Indication: HEART RATE IRREGULAR
     Dosage: 2 TABLETS OF 2.5 MG
     Route: 048
  9. DULCOLAX [Concomitant]
     Indication: ABNORMAL FAECES
     Dosage: AS NEEDED
  10. MS CONTIN [Concomitant]
     Indication: PAIN
     Dosage: AS NEEDED
     Route: 048

REACTIONS (7)
  - ABDOMINAL PAIN [None]
  - BLOOD POTASSIUM DECREASED [None]
  - BODY TEMPERATURE INCREASED [None]
  - DRUG DOSE OMISSION [None]
  - NAUSEA [None]
  - NEPHROLITHIASIS [None]
  - VOMITING [None]
